FAERS Safety Report 7169760-3 (Version None)
Quarter: 2010Q4

REPORT INFORMATION
  Report Type: 
  Country: None (occurrence: None)
  Receive Date: 20101217
  Receipt Date: 20100303
  Transmission Date: 20110411
  Serious: No
  Sender: FDA-Public Use
  Company Number: A0848046A

PATIENT
  Sex: Male

DRUGS (4)
  1. SORIATANE [Suspect]
     Indication: PSORIASIS
     Dosage: 25MG PER DAY
     Route: 048
  2. LIPITOR [Concomitant]
  3. NEXIUM [Concomitant]
  4. PSORIASIS OINTMENT [Concomitant]

REACTIONS (7)
  - ALOPECIA [None]
  - DYSPHONIA [None]
  - NAIL GROWTH ABNORMAL [None]
  - NASAL DISCOMFORT [None]
  - ONYCHOCLASIS [None]
  - POLLAKIURIA [None]
  - SKIN EXFOLIATION [None]
